FAERS Safety Report 4808592-5 (Version None)
Quarter: 2005Q4

REPORT INFORMATION
  Report Type: 
  Country: None (occurrence: None)
  Receive Date: 20051025
  Receipt Date: 20051013
  Transmission Date: 20060501
  Serious: Yes (Hospitalization)
  Sender: FDA-Public Use
  Company Number: FR-GLAXOSMITHKLINE-B0397776A

PATIENT
  Age: 51 Year
  Sex: Male
  Weight: 90 kg

DRUGS (7)
  1. ONDANSETRON [Suspect]
     Route: 042
     Dates: start: 20050718
  2. CALCIUM FOLINATE [Suspect]
     Dosage: 800MG CYCLIC
     Route: 042
     Dates: start: 20050718, end: 20050718
  3. KYTRIL [Suspect]
     Route: 042
     Dates: start: 20050718, end: 20050718
  4. ELOXATIN [Suspect]
     Dosage: 170MG CYCLIC
     Route: 042
     Dates: start: 20050718, end: 20050718
  5. FLUOROURACIL [Suspect]
     Dosage: 5.6MG CYCLIC
     Route: 042
     Dates: start: 20050718, end: 20050719
  6. SOLU-MEDROL [Suspect]
     Dosage: 120MG CYCLIC
     Route: 042
     Dates: start: 20050718, end: 20050718
  7. DOMPERIDONE [Concomitant]
     Route: 065

REACTIONS (3)
  - HAEMATURIA [None]
  - PURPURA [None]
  - THROMBOCYTOPENIA [None]
